FAERS Safety Report 6386986-7 (Version None)
Quarter: 2009Q4

REPORT INFORMATION
  Report Type: 
  Country: None (occurrence: None)
  Receive Date: 20091002
  Receipt Date: 20090925
  Transmission Date: 20100525
  Serious: Yes (Hospitalization, Other)
  Sender: FDA-Public Use
  Company Number: US-ROXANE LABORATORIES, INC.-2009-RO-00993RO

PATIENT
  Age: 13 Year
  Sex: Male

DRUGS (6)
  1. LITHIUM CARBONATE [Suspect]
     Indication: MENTAL DISORDER
     Dosage: 900 MG
  2. RISPERIDONE [Suspect]
     Indication: MENTAL DISORDER
     Dosage: 1 MG
  3. BUSPIRONE HCL [Suspect]
     Indication: MENTAL DISORDER
     Dosage: 20 MG
  4. QUETIAPINE [Suspect]
     Indication: MENTAL DISORDER
     Dosage: 75 MG
  5. METHYLPHENIDATE HCL [Suspect]
     Indication: MENTAL DISORDER
     Dosage: 18 MG
  6. ENALAPRIL MALEATE [Concomitant]
     Indication: HYPERTENSION
     Dosage: 5 MG

REACTIONS (5)
  - FACE OEDEMA [None]
  - GLOMERULONEPHROPATHY [None]
  - HYPERTENSION [None]
  - PERIORBITAL OEDEMA [None]
  - THERAPEUTIC AGENT TOXICITY [None]
